FAERS Safety Report 7361201-6 (Version None)
Quarter: 2011Q1

REPORT INFORMATION
  Report Type: 
  Country: None (occurrence: None)
  Receive Date: 20110318
  Receipt Date: 20110314
  Transmission Date: 20110831
  Serious: Yes (Other)
  Sender: FDA-Public Use
  Company Number: US-BRACCO-005952

PATIENT
  Sex: Male

DRUGS (2)
  1. ISOVUE-128 [Suspect]
     Indication: SCAN BRAIN
     Route: 042
     Dates: start: 20110203, end: 20110203
  2. ISOVUE-128 [Suspect]
     Indication: PERIORBITAL OEDEMA
     Route: 042
     Dates: start: 20110203, end: 20110203

REACTIONS (1)
  - CARDIAC ARREST [None]
